FAERS Safety Report 8918444 (Version 1)
Quarter: 2012Q4

REPORT INFORMATION
  Report Type: 
  Country: US (occurrence: US)
  Receive Date: 20121120
  Receipt Date: 20121120
  Transmission Date: 20130627
  Serious: No
  Sender: FDA-Public Use
  Company Number: US-ASTRAZENECA-2012SE17719

PATIENT
  Age: 85 Year
  Sex: Female

DRUGS (4)
  1. NEXIUM [Suspect]
     Indication: GASTROOESOPHAGEAL REFLUX DISEASE
     Route: 048
  2. NEXIUM [Suspect]
     Indication: FLATULENCE
     Route: 048
  3. NEXIUM [Suspect]
     Indication: ERUCTATION
     Route: 048
  4. SYNTHROID [Suspect]
     Dosage: IN THE MORNING
     Route: 048

REACTIONS (2)
  - Hearing impaired [Unknown]
  - Off label use [Unknown]
